FAERS Safety Report 24696631 (Version 1)
Quarter: 2024Q4

REPORT INFORMATION
  Report Type: Spontaneous
  Country: AU (occurrence: AU)
  Receive Date: 20241204
  Receipt Date: 20241204
  Transmission Date: 20250114
  Serious: Yes (Other)
  Sender: CARA THERAPEUTICS
  Company Number: AU-Vifor Pharma-VIT-2024-10961

PATIENT
  Age: 42 Year
  Sex: Male

DRUGS (2)
  1. KORSUVA [Suspect]
     Active Substance: DIFELIKEFALIN ACETATE
     Indication: Product used for unknown indication
     Dosage: 50 MCG
     Dates: start: 20241022, end: 2024
  2. KORSUVA [Suspect]
     Active Substance: DIFELIKEFALIN ACETATE
     Dosage: 65 MCG
     Dates: start: 20241109

REACTIONS (2)
  - Hyperkalaemia [Unknown]
  - Underdose [Unknown]

NARRATIVE: CASE EVENT DATE: 20241022
